FAERS Safety Report 4303661-0 (Version None)
Quarter: 2004Q1

REPORT INFORMATION
  Report Type: 
  Country: None (occurrence: None)
  Receive Date: 20040224
  Receipt Date: 20040224
  Transmission Date: 20041129
  Serious: Yes (Hospitalization)
  Sender: FDA-Public Use
  Company Number: None

PATIENT
  Sex: Female

DRUGS (6)
  1. LAMICTAL [Suspect]
     Indication: CONVULSION
     Dosage: 25 MG Q DAY ORAL
     Route: 048
     Dates: start: 20031114, end: 20031203
  2. LAMICTAL [Suspect]
     Indication: CONVULSION
     Dosage: 25 MG Q DAY PARENTERAL
     Route: 051
     Dates: start: 20040206, end: 20040209
  3. KEPPRA [Concomitant]
  4. FOLIC ACID [Concomitant]
  5. LEVOTHYROID [Concomitant]
  6. CARBATROL [Concomitant]

REACTIONS (1)
  - MENINGITIS ASEPTIC [None]
